FAERS Safety Report 5691446-2 (Version None)
Quarter: 2008Q2

REPORT INFORMATION
  Report Type: 
  Country: None (occurrence: None)
  Receive Date: 20080401
  Receipt Date: 20080401
  Transmission Date: 20081010
  Serious: Yes (Other)
  Sender: FDA-Public Use
  Company Number: None

PATIENT
  Age: 9 Year
  Sex: Female
  Weight: 34.927 kg

DRUGS (4)
  1. SINGULAIR [Suspect]
     Indication: ASTHMA
     Dosage: 1 EVERY NIGHT PO
     Route: 048
     Dates: start: 20070310, end: 20070610
  2. SINGULAIR [Suspect]
     Indication: MULTIPLE ALLERGIES
     Dosage: 1 EVERY NIGHT PO
     Route: 048
     Dates: start: 20070310, end: 20070610
  3. SINGULAIR [Suspect]
     Indication: ASTHMA
     Dosage: 1 EVERY NIGHT PO
     Route: 048
     Dates: start: 20080327, end: 20080330
  4. SINGULAIR [Suspect]
     Indication: MULTIPLE ALLERGIES
     Dosage: 1 EVERY NIGHT PO
     Route: 048
     Dates: start: 20080327, end: 20080330

REACTIONS (2)
  - HALLUCINATION [None]
  - NIGHTMARE [None]
